FAERS Safety Report 19665784 (Version 1)
Quarter: 2021Q3

REPORT INFORMATION
  Report Type: Spontaneous
  Country: US (occurrence: US)
  Receive Date: 20210805
  Receipt Date: 20210805
  Transmission Date: 20211014
  Serious: Yes (Death)
  Sender: FDA-Public Use
  Company Number: None

PATIENT
  Age: 47 Year
  Sex: Male
  Weight: 86.18 kg

DRUGS (1)
  1. HEPARIN [Suspect]
     Active Substance: HEPARIN SODIUM
     Route: 058
     Dates: start: 20210602, end: 20210612

REACTIONS (5)
  - Haemorrhage intracranial [None]
  - Subdural haematoma [None]
  - Brain herniation [None]
  - Staphylococcal infection [None]
  - Infective aneurysm [None]

NARRATIVE: CASE EVENT DATE: 20210612
